FAERS Safety Report 4501995-8 (Version None)
Quarter: 2004Q4

REPORT INFORMATION
  Report Type: 
  Country: None (occurrence: None)
  Receive Date: 20041116
  Receipt Date: 20041020
  Transmission Date: 20050328
  Serious: Yes (Life-Threatening, Hospitalization)
  Sender: FDA-Public Use
  Company Number: FR-BRISTOL-MYERS SQUIBB COMPANY-12742607

PATIENT
  Age: 16 Year
  Sex: Female
  Weight: 63 kg

DRUGS (5)
  1. HOLOXAN [Suspect]
     Indication: METASTASES TO PERITONEUM
     Route: 042
     Dates: start: 20040907, end: 20040911
  2. MESNA [Suspect]
     Indication: PROPHYLAXIS
     Route: 042
     Dates: start: 20040907, end: 20040912
  3. ETOPOSIDE TEVA [Suspect]
     Indication: METASTASES TO PERITONEUM
     Route: 042
     Dates: start: 20040907, end: 20040911
  4. CARBOPLATIN [Suspect]
     Indication: METASTASES TO PERITONEUM
     Route: 042
     Dates: start: 20040907, end: 20040908
  5. NEULASTA [Suspect]
     Route: 058
     Dates: start: 20040913, end: 20040913

REACTIONS (5)
  - CONFUSIONAL STATE [None]
  - ELECTROENCEPHALOGRAM ABNORMAL [None]
  - FEBRILE BONE MARROW APLASIA [None]
  - HALLUCINATION [None]
  - TREMOR [None]
